FAERS Safety Report 8142347-1 (Version None)
Quarter: 2012Q1

REPORT INFORMATION
  Report Type: 
  Country: None (occurrence: None)
  Receive Date: 20120216
  Receipt Date: 20120206
  Transmission Date: 20120608
  Serious: Yes (Other)
  Sender: FDA-Public Use
  Company Number: PHHY2012NL011105

PATIENT
  Age: 68 Year
  Sex: Male

DRUGS (9)
  1. PREDNISOLONE [Suspect]
     Dosage: 7.5 MG, UNK
  2. MYCOPHENOLATE MOFETIL [Suspect]
     Indication: PEMPHIGUS
     Dosage: 1500 MG, UNK
  3. AZATHIOPRINE [Suspect]
     Indication: PEMPHIGUS
     Dosage: 3 MG/KG, UNK
  4. DEXAMETHASONE [Suspect]
     Indication: PEMPHIGUS
  5. IMMUNE GLOBULIN INTRAVENOUS (HUMAN) [Suspect]
     Indication: PEMPHIGUS
     Route: 042
  6. RITUXIMAB [Suspect]
     Indication: PEMPHIGUS
  7. CYCLOPHOSPHAMIDE [Suspect]
     Indication: PEMPHIGUS
  8. MYCOPHENOLIC ACID [Suspect]
     Indication: PEMPHIGUS
     Dosage: 1440 MG, UNK
  9. PREDNISOLONE [Suspect]
     Indication: PEMPHIGUS
     Dosage: 0.5 MG/KG, UNK

REACTIONS (10)
  - SKIN LESION [None]
  - HERPES SIMPLEX [None]
  - DIABETES MELLITUS [None]
  - CATARACT [None]
  - DRUG RESISTANCE [None]
  - DIVERTICULITIS [None]
  - IMPETIGO [None]
  - FATIGUE [None]
  - BRONCHITIS [None]
  - NAUSEA [None]
